FAERS Safety Report 14533914 (Version 1)
Quarter: 2018Q1

REPORT INFORMATION
  Report Type: Spontaneous
  Country: IT (occurrence: IT)
  Receive Date: 20180215
  Receipt Date: 20180215
  Transmission Date: 20180509
  Serious: Yes (Hospitalization)
  Sender: FDA-Public Use
  Company Number: IT-CIPLA LTD.-2018IT03617

PATIENT

DRUGS (6)
  1. ANTRA                              /00661201/ [Concomitant]
     Active Substance: OMEPRAZOLE
     Indication: PRODUCT USED FOR UNKNOWN INDICATION
     Dosage: 20 MG, PER DAY
     Route: 042
  2. ZOFRAN [Concomitant]
     Active Substance: ONDANSETRON HYDROCHLORIDE
     Indication: PRODUCT USED FOR UNKNOWN INDICATION
     Dosage: 21 MG, PER DAY
     Route: 042
  3. CARBOPLATIN. [Suspect]
     Active Substance: CARBOPLATIN
     Indication: ASTROCYTOMA, LOW GRADE
     Dosage: 550 MG/M2, 1 CYCLE
     Route: 042
     Dates: start: 20170812, end: 20171210
  4. VINCRISTINE [Suspect]
     Active Substance: VINCRISTINE
     Indication: ASTROCYTOMA, LOW GRADE
     Dosage: 1.5 MG/M2, 1 CYCLE
     Route: 042
  5. PAXABEL [Concomitant]
     Indication: PRODUCT USED FOR UNKNOWN INDICATION
     Dosage: 1 DF, PER DAY
     Route: 048
  6. TRIMETON [Concomitant]
     Active Substance: CHLORPHENIRAMINE MALEATE
     Indication: PRODUCT USED FOR UNKNOWN INDICATION
     Dosage: 12 MG, PER DAY
     Route: 042

REACTIONS (3)
  - Thrombocytopenia [Recovered/Resolved]
  - Haematoma [Recovered/Resolved]
  - Petechiae [Recovered/Resolved]

NARRATIVE: CASE EVENT DATE: 20171127
